FAERS Safety Report 5074867-0 (Version None)
Quarter: 2006Q3

REPORT INFORMATION
  Report Type: 
  Country: None (occurrence: None)
  Receive Date: 20060804
  Receipt Date: 20060728
  Transmission Date: 20061208
  Serious: Yes (Hospitalization, Disabling)
  Sender: FDA-Public Use
  Company Number: CIP06001722

PATIENT
  Age: 53 Year
  Sex: Female
  Weight: 38.1 kg

DRUGS (30)
  1. ACTONEL [Suspect]
     Indication: OSTEOPOROSIS
     Dosage: 35 MG ONCE WEEKLY, ORAL; SEE IMAGE
     Route: 048
     Dates: start: 20010101, end: 20031001
  2. ACTONEL [Suspect]
     Indication: OSTEOPOROSIS
     Dosage: 35 MG ONCE WEEKLY, ORAL; SEE IMAGE
     Route: 048
     Dates: start: 20050401
  3. FOSAMAX [Suspect]
     Indication: OSTEOPOROSIS
     Dosage: 10 MG DAILY, ORAL
     Route: 048
     Dates: start: 19960101, end: 19980101
  4. PERIDEX (CHLORHEXIDINE GLUCONATE) [Concomitant]
  5. NYSTATIN [Concomitant]
  6. PERI-COLACE [Concomitant]
  7. FERROUS SULFATE TAB [Concomitant]
  8. CALCIUM (CALCIUM) [Concomitant]
  9. MULTIVIT (VITAMINS NOS) [Concomitant]
  10. NORTRIPTYLINE HCL [Concomitant]
  11. LIDOCAINE [Concomitant]
  12. ZOFRAN [Concomitant]
  13. PHENERGAN [Concomitant]
  14. PLAQUENIL [Concomitant]
  15. TEMAZEPAM [Concomitant]
  16. LAMICTAL [Concomitant]
  17. OXYCODONE (OXYCODONE) [Concomitant]
  18. ATIVAN [Concomitant]
  19. REGLAN /USA/ (METOCLOPRAMIDE HYDROCHLORIDE) [Concomitant]
  20. ZOLOFT [Concomitant]
  21. RITALIN [Concomitant]
  22. LEVOTHROID [Concomitant]
  23. PROGRAF [Concomitant]
  24. PREDNISONE TAB [Concomitant]
  25. GANCICLOVIR [Concomitant]
  26. PREVACID [Concomitant]
  27. RANITIDINE [Concomitant]
  28. BENADRYL ^WARNER-LAMBERT^ /USA/ (DIPHENHYDRAMINE HYDROCHLORIDE) [Concomitant]
  29. FLEET /DEN/ (SODIUM PHOSPHATE MONOBASIC, SODIUM PHOSPHATE DIBASIC) [Concomitant]
  30. DIDRONEL [Suspect]
     Indication: OSTEOPOROSIS
     Dosage: 400 MG DAILY ORAL
     Route: 048
     Dates: start: 20000101, end: 20010101

REACTIONS (4)
  - HOSPITALISATION [None]
  - OSTEONECROSIS [None]
  - TOOTH DISCOLOURATION [None]
  - TOOTH EXTRACTION [None]
